FAERS Safety Report 6159937-8 (Version None)
Quarter: 2009Q2

REPORT INFORMATION
  Report Type: 
  Country: None (occurrence: None)
  Receive Date: 20090415
  Receipt Date: 20071109
  Transmission Date: 20091009
  Serious: Yes (Hospitalization)
  Sender: FDA-Public Use
  Company Number: UKO07001019

PATIENT
  Sex: Male

DRUGS (2)
  1. OXYMETAZOLINE HCL [Suspect]
     Dosage: 2/DAY, INTRANSAL
     Route: 045
     Dates: start: 20070922, end: 20070923
  2. BISOPROLOL FUMARATE [Concomitant]

REACTIONS (3)
  - CARDIAC ARREST [None]
  - VENTRICULAR FIBRILLATION [None]
  - VENTRICULAR TACHYCARDIA [None]
